FAERS Safety Report 18216037 (Version 1)
Quarter: 2020Q3

REPORT INFORMATION
  Report Type: Spontaneous
  Country: FR (occurrence: FR)
  Receive Date: 20200901
  Receipt Date: 20200901
  Transmission Date: 20201103
  Serious: Yes (Disabling)
  Sender: FDA-Public Use
  Company Number: FR-TEVA-2020-FR-1821103

PATIENT
  Age: 33 Year
  Sex: Female

DRUGS (1)
  1. TAMOXIFENE BASE [Suspect]
     Active Substance: TAMOXIFEN
     Indication: BREAST CANCER
     Route: 048
     Dates: start: 20191023

REACTIONS (3)
  - Amnesia [Not Recovered/Not Resolved]
  - Disorientation [Not Recovered/Not Resolved]
  - Aphasia [Not Recovered/Not Resolved]

NARRATIVE: CASE EVENT DATE: 20200110
